FAERS Safety Report 19352359 (Version 1)
Quarter: 2021Q2

REPORT INFORMATION
  Report Type: Report from Study
  Country: US (occurrence: US)
  Receive Date: 20210601
  Receipt Date: 20210601
  Transmission Date: 20210717
  Serious: Yes (Hospitalization, Other)
  Sender: FDA-Public Use
  Company Number: US-BRISTOL-MYERS SQUIBB COMPANY-BMS-2021-049805

PATIENT
  Sex: Male
  Weight: 90.71 kg

DRUGS (3)
  1. DASATINIB. [Suspect]
     Active Substance: DASATINIB
     Dosage: 100 MILLIGRAM
     Route: 065
  2. DASATINIB. [Suspect]
     Active Substance: DASATINIB
     Dosage: 200 MILLIGRAM
     Route: 065
  3. DASATINIB. [Suspect]
     Active Substance: DASATINIB
     Indication: LEUKAEMIA
     Dosage: 50 MILLIGRAM
     Route: 065
     Dates: start: 2020

REACTIONS (10)
  - Diverticulitis [Unknown]
  - Paraesthesia [Unknown]
  - Haemorrhage [Unknown]
  - Gout [Unknown]
  - Fatigue [Unknown]
  - Pain [Unknown]
  - Cerebrovascular accident [Unknown]
  - Intestinal haemorrhage [Unknown]
  - Heart rate decreased [Recovered/Resolved]
  - Wrong technique in product usage process [Unknown]
